FAERS Safety Report 12881553 (Version 3)
Quarter: 2017Q1

REPORT INFORMATION
  Report Type: Spontaneous
  Country: US (occurrence: US)
  Receive Date: 20161025
  Receipt Date: 20170116
  Transmission Date: 20170428
  Serious: No
  Sender: FDA-Public Use
  Company Number: US-JNJFOC-20161004304

PATIENT
  Age: 47 Year
  Sex: Male

DRUGS (1)
  1. RISPERDAL CONSTA [Suspect]
     Active Substance: RISPERIDONE
     Indication: AFFECT LABILITY
     Route: 030
     Dates: start: 20160219

REACTIONS (5)
  - Device malfunction [Unknown]
  - Product use issue [Unknown]
  - Off label use [Unknown]
  - Drug dose omission [Unknown]
  - Device leakage [Unknown]

NARRATIVE: CASE EVENT DATE: 20161005
